FAERS Safety Report 4971505-X (Version None)
Quarter: 2006Q2

REPORT INFORMATION
  Report Type: 
  Country: None (occurrence: None)
  Receive Date: 20060413
  Receipt Date: 20060407
  Transmission Date: 20061013
  Serious: Yes (Hospitalization, Disabling, Other)
  Sender: FDA-Public Use
  Company Number: PHBS2006ES05222

PATIENT
  Age: 53 Year
  Sex: Female

DRUGS (2)
  1. ZOMETA [Suspect]
     Indication: METASTASES TO BONE
     Dosage: 4 MG, QMO
     Route: 042
     Dates: start: 20030501, end: 20050501
  2. RADIOTHERAPY [Concomitant]

REACTIONS (4)
  - MAXILLOFACIAL OPERATION [None]
  - MOUTH ULCERATION [None]
  - OSTEONECROSIS [None]
  - PAIN IN JAW [None]
